FAERS Safety Report 18111365 (Version 1)
Quarter: 2020Q3

REPORT INFORMATION
  Report Type: Report from Study
  Country: GR (occurrence: GR)
  Receive Date: 20200804
  Receipt Date: 20200804
  Transmission Date: 20201103
  Serious: Yes (Hospitalization)
  Sender: FDA-Public Use
  Company Number: GR-TAKEDA-2020TUS033327

PATIENT
  Age: 66 Year
  Sex: Male
  Weight: 82 kg

DRUGS (4)
  1. VEDOLIZUMAB [Suspect]
     Active Substance: VEDOLIZUMAB
     Indication: COLITIS ULCERATIVE
     Dosage: 300 MILLIGRAM
     Route: 042
     Dates: start: 20190822, end: 20190906
  2. DIANICOTYL [Concomitant]
     Indication: TUBERCULOSIS
     Dosage: 100 MILLIGRAM
     Route: 048
     Dates: start: 20190711, end: 20200312
  3. PENTASA [Concomitant]
     Active Substance: MESALAMINE
     Indication: COLITIS ULCERATIVE
     Dosage: 4 GRAM
     Route: 048
     Dates: start: 20190213
  4. PREZOLON [Concomitant]
     Active Substance: PREDNISOLONE
     Indication: COLITIS ULCERATIVE
     Dosage: 5 MILLIGRAM
     Route: 048
     Dates: start: 20190723, end: 20191002

REACTIONS (1)
  - Respiratory tract infection [Recovered/Resolved]

NARRATIVE: CASE EVENT DATE: 20190828
